FAERS Safety Report 8117714-2 (Version None)
Quarter: 2012Q1

REPORT INFORMATION
  Report Type: 
  Country: None (occurrence: None)
  Receive Date: 20120203
  Receipt Date: 20120203
  Transmission Date: 20120608
  Serious: Yes (Death, Hospitalization)
  Sender: FDA-Public Use
  Company Number: None

PATIENT
  Sex: Female
  Weight: 84.32 kg

DRUGS (12)
  1. LEXAPRO [Concomitant]
  2. VANCOMYCIN [Concomitant]
  3. TEMOZOLOMIDE [Suspect]
     Dosage: 180 MG
  4. COUMADIN [Concomitant]
  5. DEXAMETHASONE [Concomitant]
  6. SYNTHROID [Concomitant]
  7. IRINOTECAN HCL [Suspect]
     Dosage: 362 MG
  8. TOPROL-XL [Concomitant]
  9. ARMODAFINIL [Concomitant]
  10. ZOSYN [Concomitant]
  11. KEPPRA [Concomitant]
  12. ONDANSETRON HCL [Concomitant]

REACTIONS (2)
  - BODY TEMPERATURE INCREASED [None]
  - PULMONARY EMBOLISM [None]
